FAERS Safety Report 25858445 (Version 2)
Quarter: 2025Q4

REPORT INFORMATION
  Report Type: Report from Study
  Country: JP (occurrence: JP)
  Receive Date: 20250929
  Receipt Date: 20251010
  Transmission Date: 20260117
  Serious: Yes (Other)
  Sender: INSMED
  Company Number: JP-INSMED, INC.-2025-03793-JP

PATIENT
  Age: 59 Year
  Sex: Female

DRUGS (1)
  1. ARIKAYCE [Suspect]
     Active Substance: AMIKACIN
     Indication: Mycobacterium avium complex infection
     Dosage: UNK, UNK
     Route: 055
     Dates: start: 20250907

REACTIONS (3)
  - Pharyngeal haemorrhage [Unknown]
  - Aphonia [Unknown]
  - Cough [Unknown]

NARRATIVE: CASE EVENT DATE: 20250913
